FAERS Safety Report 23552200 (Version 1)
Quarter: 2024Q1

REPORT INFORMATION
  Report Type: Spontaneous
  Country: US (occurrence: US)
  Receive Date: 20240222
  Receipt Date: 20240222
  Transmission Date: 20240410
  Serious: No
  Sender: FDA-Public Use
  Company Number: US-BRISTOL-MYERS SQUIBB COMPANY-2024-028557

PATIENT
  Age: 67 Year
  Sex: Female
  Weight: 86.64 kg

DRUGS (1)
  1. REVLIMID [Suspect]
     Active Substance: LENALIDOMIDE
     Indication: Plasma cell myeloma
     Dosage: 14D OF 21D
     Route: 048

REACTIONS (4)
  - Abdominal discomfort [Recovering/Resolving]
  - Mobility decreased [Recovering/Resolving]
  - Nausea [Recovering/Resolving]
  - Off label use [Unknown]
